FAERS Safety Report 9866682 (Version 1)
Quarter: 2014Q1

REPORT INFORMATION
  Report Type: Spontaneous
  Country: US (occurrence: US)
  Receive Date: 20140204
  Receipt Date: 20140204
  Transmission Date: 20141002
  Serious: No
  Sender: FDA-Public Use
  Company Number: US-BIOGENIDEC-2014BI008571

PATIENT
  Age: 42 Year
  Sex: Female

DRUGS (2)
  1. TECFIDERA [Suspect]
     Indication: MULTIPLE SCLEROSIS
     Route: 048
     Dates: start: 20131227, end: 20140101
  2. TECFIDERA [Suspect]
     Indication: MULTIPLE SCLEROSIS
     Route: 048
     Dates: start: 20140102

REACTIONS (6)
  - Migraine [Unknown]
  - Headache [Unknown]
  - Hypoaesthesia [Unknown]
  - Paraesthesia [Unknown]
  - Abdominal discomfort [Unknown]
  - Diarrhoea [Unknown]
